FAERS Safety Report 24753215 (Version 1)
Quarter: 2024Q4

REPORT INFORMATION
  Report Type: Spontaneous
  Country: CA (occurrence: CA)
  Receive Date: 20241219
  Receipt Date: 20241219
  Transmission Date: 20250114
  Serious: Yes (Other)
  Sender: AMGEN
  Company Number: CA-AMGEN-CANSP2024245017

PATIENT

DRUGS (2)
  1. FILGRASTIM [Suspect]
     Active Substance: FILGRASTIM
     Indication: Autologous haematopoietic stem cell transplant
     Dosage: UNK
     Route: 065
  2. CYCLOPHOSPHAMIDE [Concomitant]
     Active Substance: CYCLOPHOSPHAMIDE
     Indication: Autologous haematopoietic stem cell transplant

REACTIONS (6)
  - Cytomegalovirus infection reactivation [Unknown]
  - BK virus infection [Unknown]
  - Viral haemorrhagic cystitis [Unknown]
  - Varicella zoster virus infection [Unknown]
  - Dermatitis [Unknown]
  - Herpes simplex reactivation [Unknown]
